FAERS Safety Report 6827304-7 (Version None)
Quarter: 2010Q3

REPORT INFORMATION
  Report Type: 
  Country: None (occurrence: None)
  Receive Date: 20100709
  Receipt Date: 20100708
  Transmission Date: 20110219
  Serious: Yes (Hospitalization, Other)
  Sender: FDA-Public Use
  Company Number: DK-ROXANE LABORATORIES, INC.-2010-RO-00816RO

PATIENT
  Age: 61 Year
  Sex: Female

DRUGS (8)
  1. CITALOPRAM HYDROBROMIDE [Suspect]
     Indication: DEPRESSION
  2. ESCITALOPRAM [Suspect]
     Indication: DEPRESSION
     Dosage: 10 MG
  3. ESCITALOPRAM [Suspect]
  4. ESCITALOPRAM [Suspect]
     Dosage: 20 MG
  5. OMEPRAZOLE [Suspect]
     Dosage: 40 MG
  6. VENLAFAXINE [Suspect]
     Indication: DEPRESSION
  7. VITAMIN B COMPLEX CAP [Suspect]
     Indication: DEHYDRATION
  8. DISULFIRAM [Suspect]

REACTIONS (19)
  - ALCOHOL USE [None]
  - ATAXIA [None]
  - BLOOD ALBUMIN DECREASED [None]
  - BLOOD SODIUM DECREASED [None]
  - CONFUSIONAL STATE [None]
  - DEHYDRATION [None]
  - DEPRESSION [None]
  - DIARRHOEA [None]
  - DIZZINESS [None]
  - DRUG WITHDRAWAL SYNDROME [None]
  - GAIT DISTURBANCE [None]
  - HAEMOGLOBIN DECREASED [None]
  - LETHARGY [None]
  - MALNUTRITION [None]
  - MYOCLONUS [None]
  - SINUS TACHYCARDIA [None]
  - THERAPY CESSATION [None]
  - TREATMENT NONCOMPLIANCE [None]
  - TREMOR [None]
